FAERS Safety Report 16443322 (Version 1)
Quarter: 2019Q2

REPORT INFORMATION
  Report Type: Spontaneous
  Country: US (occurrence: US)
  Receive Date: 20190618
  Receipt Date: 20190618
  Transmission Date: 20190711
  Serious: Yes (Death)
  Sender: FDA-Public Use
  Company Number: US-BEH-2019103058

PATIENT
  Sex: Female

DRUGS (1)
  1. PRE-FILLED SYRINGE (DEVICE) [Suspect]
     Active Substance: DEVICE
     Indication: HYPOGAMMAGLOBULINAEMIA
     Dosage: 8 GRAM, QW
     Route: 058
     Dates: start: 20181128

REACTIONS (1)
  - Death [Fatal]
